FAERS Safety Report 8521417-X (Version None)
Quarter: 2012Q3

REPORT INFORMATION
  Report Type: 
  Country: None (occurrence: None)
  Receive Date: 20120719
  Receipt Date: 20120710
  Transmission Date: 20120928
  Serious: Yes (Hospitalization)
  Sender: FDA-Public Use
  Company Number: FR-ASTRAZENECA-2012SE48693

PATIENT
  Age: 67 Year
  Sex: Female
  Weight: 56 kg

DRUGS (16)
  1. CEFAZOLIN [Concomitant]
     Indication: EXPLORATORY OPERATION
     Dates: start: 20120607, end: 20120607
  2. METFORMIN HCL [Concomitant]
  3. CEFEPIME [Concomitant]
     Dates: start: 20120616, end: 20120618
  4. ZANIDIPE [Concomitant]
  5. TENORMIN [Concomitant]
  6. METRONIDAZOLE [Concomitant]
     Dates: start: 20120617, end: 20120617
  7. ALBUMIN (HUMAN) [Concomitant]
     Dates: start: 20120619, end: 20120619
  8. METRONIDAZOLE [Concomitant]
     Dates: start: 20120618, end: 20120618
  9. MEROPENEM [Suspect]
     Route: 042
     Dates: start: 20120619, end: 20120625
  10. AMIKACIN [Suspect]
     Route: 042
     Dates: start: 20120616, end: 20120622
  11. ALBUMIN (HUMAN) [Concomitant]
     Dates: start: 20120620, end: 20120620
  12. ASPIRIN [Concomitant]
  13. ATORVASTATIN [Concomitant]
  14. LASIX [Suspect]
     Route: 065
     Dates: start: 20120617, end: 20120703
  15. LANTUS [Suspect]
     Route: 065
     Dates: start: 20120619, end: 20120628
  16. CEFAZOLIN [Concomitant]
     Dates: start: 20120611, end: 20120611

REACTIONS (1)
  - TOXIC SKIN ERUPTION [None]
